FAERS Safety Report 22393065 (Version 1)
Quarter: 2023Q2

REPORT INFORMATION
  Report Type: Spontaneous
  Country: IT (occurrence: IT)
  Receive Date: 20230601
  Receipt Date: 20230601
  Transmission Date: 20230722
  Serious: Yes (Hospitalization, Other)
  Sender: FDA-Public Use
  Company Number: IT-VALIDUS PHARMACEUTICALS LLC-IT-VDP-2023-016122

PATIENT

DRUGS (1)
  1. LASIX [Suspect]
     Active Substance: FUROSEMIDE
     Indication: Renal failure
     Dosage: 25 MG, QD
     Route: 048
     Dates: start: 20210501, end: 20230511

REACTIONS (2)
  - Syncope [Recovering/Resolving]
  - Hyponatraemia [Recovering/Resolving]

NARRATIVE: CASE EVENT DATE: 20230511
